FAERS Safety Report 20343911 (Version 1)
Quarter: 2022Q1

REPORT INFORMATION
  Report Type: Report from Study
  Country: CA (occurrence: CA)
  Receive Date: 20220118
  Receipt Date: 20220118
  Transmission Date: 20220423
  Serious: Yes (Other)
  Sender: FDA-Public Use
  Company Number: CA-JNJFOC-20220120783

PATIENT
  Age: 61 Year
  Sex: Female

DRUGS (1)
  1. REMICADE [Suspect]
     Active Substance: INFLIXIMAB
     Indication: Crohn^s disease
     Dosage: ON 12-JAN-2022, THE PATIENT RECEIVED 91TH INFLIXIMAB INFUSION FOR DOSE OF 700 MG AND PARTIAL HARVEY-
     Route: 042
     Dates: start: 20100304

REACTIONS (3)
  - Crohn^s disease [Unknown]
  - COVID-19 [Recovered/Resolved]
  - Arthralgia [Unknown]

NARRATIVE: CASE EVENT DATE: 20211222
